FAERS Safety Report 4880869-7 (Version None)
Quarter: 2005Q4

REPORT INFORMATION
  Report Type: 
  Country: None (occurrence: None)
  Receive Date: 20051223
  Receipt Date: 20051108
  Transmission Date: 20060501
  Serious: No
  Sender: FDA-Public Use
  Company Number: 05P-163-0317054-00

PATIENT
  Age: 67 Year
  Sex: Female
  Weight: 70.3075 kg

DRUGS (3)
  1. HUMIRA [Suspect]
     Indication: RHEUMATOID ARTHRITIS
     Dosage: 40 MG, 1 IN 2 WKS, SUBCUTANEOUS
     Route: 058
     Dates: start: 20050101, end: 20051101
  2. METHOTREXATE [Concomitant]
  3. METOPROLOL TARTRATE [Concomitant]

REACTIONS (3)
  - BLISTER [None]
  - HEADACHE [None]
  - PARAESTHESIA [None]
